FAERS Safety Report 23151204 (Version 1)
Quarter: 2023Q4

REPORT INFORMATION
  Report Type: Spontaneous
  Country: US (occurrence: US)
  Receive Date: 20231106
  Receipt Date: 20231106
  Transmission Date: 20240109
  Serious: Yes (Other)
  Sender: FDA-Public Use
  Company Number: US-ABBVIE-5478182

PATIENT
  Age: 73 Year
  Sex: Female

DRUGS (1)
  1. REFRESH OPTIVE GEL DROPS [Suspect]
     Active Substance: CARBOXYMETHYLCELLULOSE SODIUM\GLYCERIN
     Indication: Prophylaxis against transplant rejection
     Route: 047

REACTIONS (3)
  - Surgery [Unknown]
  - Product container issue [Unknown]
  - Tremor [Unknown]

NARRATIVE: CASE EVENT DATE: 20220801
